FAERS Safety Report 9336949 (Version 3)
Quarter: 2013Q3

REPORT INFORMATION
  Report Type: Report from Study
  Country: CA (occurrence: CA)
  Receive Date: 20130607
  Receipt Date: 20130813
  Transmission Date: 20140515
  Serious: Yes (Other)
  Sender: FDA-Public Use
  Company Number: CA-BRISTOL-MYERS SQUIBB COMPANY-18732990

PATIENT
  Age: 74 Year
  Sex: Female

DRUGS (21)
  1. ORENCIA [Suspect]
     Indication: RHEUMATOID ARTHRITIS
     Dosage: EXP DT:SEP15
     Route: 042
     Dates: start: 20090903
  2. METHOTREXATE [Suspect]
  3. PREDNISONE [Suspect]
  4. PENICILLIN [Concomitant]
  5. TRAMACET [Concomitant]
  6. CELEBREX [Concomitant]
  7. PREVEX [Concomitant]
  8. LOPROX [Concomitant]
  9. GRAVOL [Concomitant]
  10. XYLOCAINE [Concomitant]
  11. KETODERM [Concomitant]
  12. HYDROCORTISONE [Concomitant]
  13. CITALOPRAM [Concomitant]
  14. AMLODIPINE [Concomitant]
  15. OXAZEPAM [Concomitant]
  16. OXYCONTIN [Concomitant]
  17. OXYCODONE [Concomitant]
  18. ELAVIL [Concomitant]
  19. ATIVAN [Concomitant]
  20. SINEMET [Concomitant]
  21. PREVACID [Concomitant]
     Dates: start: 2009

REACTIONS (8)
  - Abdominal pain lower [Not Recovered/Not Resolved]
  - Cyst [Not Recovered/Not Resolved]
  - Gastroenteritis viral [Not Recovered/Not Resolved]
  - Dehydration [Not Recovered/Not Resolved]
  - Bronchitis [Recovering/Resolving]
  - Vulvovaginal candidiasis [Not Recovered/Not Resolved]
  - Nausea [Unknown]
  - Sciatica [Unknown]
